FAERS Safety Report 6722775-9 (Version None)
Quarter: 2010Q2

REPORT INFORMATION
  Report Type: 
  Country: None (occurrence: None)
  Receive Date: 20100511
  Receipt Date: 20100430
  Transmission Date: 20101027
  Serious: Yes (Other)
  Sender: FDA-Public Use
  Company Number: IPC201004-000121

PATIENT
  Age: 58 Year
  Sex: Male

DRUGS (2)
  1. ATENOLOL [Suspect]
     Indication: HYPERTENSION
     Dosage: 50 MG, 1 IN 1 D
  2. CHLORPROPAMIDE [Suspect]
     Indication: DIABETES MELLITUS
     Dosage: 100 MG, 1 IN 1 D

REACTIONS (3)
  - HYPERKERATOSIS [None]
  - LICHEN PLANUS [None]
  - ORAL MUCOSAL DISCOLOURATION [None]
